FAERS Safety Report 22541476 (Version 1)
Quarter: 2023Q2

REPORT INFORMATION
  Report Type: Spontaneous
  Country: CA (occurrence: None)
  Receive Date: 20230608
  Receipt Date: 20230608
  Transmission Date: 20230722
  Serious: Yes (Life-Threatening)
  Sender: FDA-Public Use
  Company Number: None

PATIENT
  Age: 79 Year
  Sex: Female
  Weight: 58.5 kg

DRUGS (3)
  1. HYDRALAZINE [Suspect]
     Active Substance: HYDRALAZINE HYDROCHLORIDE
     Indication: Hypertension
     Dosage: OTHER STRENGTH : DO NOT KNOW;?OTHER QUANTITY : 1 DON^T KNOW;?FREQUENCY : AT BEDTIME;?OTHER ROUTE : D
     Route: 050
  2. RAMIPRIL [Concomitant]
     Active Substance: RAMIPRIL
  3. Magnesium gel [Concomitant]

REACTIONS (8)
  - Cough [None]
  - Taste disorder [None]
  - Dyspnoea [None]
  - Asthenia [None]
  - Skin discolouration [None]
  - Tremor [None]
  - Movement disorder [None]
  - Cyanosis [None]

NARRATIVE: CASE EVENT DATE: 20230115
